FAERS Safety Report 15023084 (Version 2)
Quarter: 2018Q2

REPORT INFORMATION
  Report Type: Spontaneous
  Country: US (occurrence: US)
  Receive Date: 20180618
  Receipt Date: 20180622
  Transmission Date: 20180711
  Serious: Yes (Death, Life-Threatening, Hospitalization, Other)
  Sender: FDA-Public Use
  Company Number: US-BAYER-2018-113048

PATIENT
  Age: 75 Year
  Sex: Male

DRUGS (3)
  1. RIVAROXABAN [Suspect]
     Active Substance: RIVAROXABAN
     Indication: ATRIAL FIBRILLATION
  2. ACETYLSALICYLIC ACID({=100 MG) [Suspect]
     Active Substance: ASPIRIN
     Dosage: UNK
  3. HEPARIN [Suspect]
     Active Substance: HEPARIN SODIUM
     Dosage: UNK

REACTIONS (13)
  - Contraindicated product administered [None]
  - Traumatic haemothorax [None]
  - Labelled drug-drug interaction medication error [None]
  - Subarachnoid haemorrhage [None]
  - Clavicle fracture [None]
  - Fractured sacrum [None]
  - Haemorrhage intracranial [Fatal]
  - Arterial haemorrhage [None]
  - Shock haemorrhagic [None]
  - Rib fracture [None]
  - Pulmonary embolism [None]
  - Infusion site extravasation [None]
  - Subdural haematoma [None]
